FAERS Safety Report 6895268-6 (Version None)
Quarter: 2010Q3

REPORT INFORMATION
  Report Type: 
  Country: None (occurrence: None)
  Receive Date: 20100802
  Receipt Date: 20100722
  Transmission Date: 20110219
  Serious: Yes (Hospitalization)
  Sender: FDA-Public Use
  Company Number: SG-WATSON-2010-10164

PATIENT
  Age: 52 Year

DRUGS (2)
  1. ALENDRONATE SODIUM (WATSON LABORATORIES) [Suspect]
     Indication: PRODUCT USED FOR UNKNOWN INDICATION
     Dosage: UNK
  2. PREDNISOLONE (WATSON LABORATORIES) [Suspect]
     Indication: BEHCET'S SYNDROME
     Dosage: UNK

REACTIONS (1)
  - FEMUR FRACTURE [None]
